FAERS Safety Report 17139557 (Version 3)
Quarter: 2020Q4

REPORT INFORMATION
  Report Type: Report from Study
  Country: US (occurrence: US)
  Receive Date: 20191211
  Receipt Date: 20201102
  Transmission Date: 20210113
  Serious: Yes (Other)
  Sender: FDA-Public Use
  Company Number: US-ROCHE-2493708

PATIENT
  Age: 50 Year
  Sex: Male
  Weight: 75.2 kg

DRUGS (13)
  1. NYSTATIN. [Concomitant]
     Active Substance: NYSTATIN
  2. STANNOUS FLUORIDE. [Concomitant]
     Active Substance: STANNOUS FLUORIDE
  3. ATOVAQUONE. [Concomitant]
     Active Substance: ATOVAQUONE
  4. MAGNESIUM OXIDE. [Concomitant]
     Active Substance: MAGNESIUM OXIDE
  5. URSODIOL. [Concomitant]
     Active Substance: URSODIOL
  6. FOLIC ACID. [Concomitant]
     Active Substance: FOLIC ACID
  7. ISAVUCONAZONIUM [Concomitant]
     Active Substance: ISAVUCONAZONIUM
  8. NILOTINIB [Concomitant]
     Active Substance: NILOTINIB
  9. OBINUTUZUMAB. [Suspect]
     Active Substance: OBINUTUZUMAB
     Indication: GRAFT VERSUS HOST DISEASE
     Dosage: AT 3, 6, 9 AND 12 MONTHS FROM TRANSPLANTATION (AS PER PROTOCOL)
     Route: 042
     Dates: start: 20191204, end: 20191204
  10. PROCHLORPERAZINE. [Concomitant]
     Active Substance: PROCHLORPERAZINE
  11. SULFAMETHOXAZOLE/TRIMETHOPRIM [Concomitant]
     Active Substance: SULFAMETHOXAZOLE\TRIMETHOPRIM
  12. TACROLIMUS. [Concomitant]
     Active Substance: TACROLIMUS
  13. ACYCLOVIR. [Concomitant]
     Active Substance: ACYCLOVIR

REACTIONS (1)
  - Infusion related reaction [Recovered/Resolved]

NARRATIVE: CASE EVENT DATE: 20191204
